FAERS Safety Report 8664889 (Version 4)
Quarter: 2013Q4

REPORT INFORMATION
  Report Type: Report from Study
  Country: US (occurrence: US)
  Receive Date: 20120713
  Receipt Date: 20131216
  Transmission Date: 20140711
  Serious: Yes (Hospitalization, Other)
  Sender: FDA-Public Use
  Company Number: US-ROCHE-GNE313851

PATIENT
  Age: 34 Year
  Sex: Female

DRUGS (25)
  1. OMALIZUMAB [Suspect]
     Indication: ASTHMA
     Route: 058
     Dates: start: 20090114, end: 20120425
  2. OMALIZUMAB [Suspect]
     Route: 058
     Dates: start: 20111221
  3. OMALIZUMAB [Suspect]
     Route: 058
     Dates: start: 20120206
  4. OMALIZUMAB [Suspect]
     Route: 058
     Dates: start: 20120425
  5. OMALIZUMAB [Suspect]
     Route: 058
     Dates: start: 201106
  6. OMALIZUMAB [Suspect]
     Route: 058
     Dates: start: 201107
  7. OMALIZUMAB [Suspect]
     Route: 058
     Dates: start: 20110801
  8. OMALIZUMAB [Suspect]
     Route: 058
     Dates: start: 20110815
  9. OMALIZUMAB [Suspect]
     Route: 058
     Dates: start: 20111001
  10. OMALIZUMAB [Suspect]
     Route: 058
     Dates: start: 20111015
  11. OMALIZUMAB [Suspect]
     Route: 058
     Dates: start: 201112
  12. OMALIZUMAB [Suspect]
     Route: 058
     Dates: start: 20120215
  13. OMALIZUMAB [Suspect]
     Route: 058
     Dates: start: 201203
  14. NEXIUM [Concomitant]
     Indication: GASTROOESOPHAGEAL REFLUX DISEASE
     Dosage: UNK
     Route: 048
  15. ZOLOFT [Concomitant]
     Indication: DEPRESSION
     Dosage: UNK
     Route: 048
  16. ADVAIR [Concomitant]
     Indication: ASTHMA
     Route: 065
  17. PROAIR (UNITED STATES) [Concomitant]
     Indication: ASTHMA
     Route: 065
  18. SUDAFED [Concomitant]
     Indication: NASOPHARYNGITIS
     Dosage: UNK
     Route: 048
  19. TYLENOL [Concomitant]
     Indication: HEADACHE
     Dosage: UNK
     Route: 048
  20. TUMS [Concomitant]
     Indication: DYSPEPSIA
     Dosage: UNK
     Route: 048
  21. PRENATAL VITAMINS [Concomitant]
     Indication: PRODUCT USED FOR UNKNOWN INDICATION
  22. FLINTSTONES VITAMINS [Concomitant]
     Indication: PREGNANCY
     Dosage: UNK
     Route: 048
  23. MOTRIN [Concomitant]
     Indication: HEADACHE
  24. MOTRIN [Concomitant]
     Indication: PAIN
  25. TOVIAZ [Concomitant]

REACTIONS (5)
  - Pneumonia [Recovered/Resolved]
  - Postpartum depression [Unknown]
  - Urinary incontinence [Unknown]
  - Exposure during pregnancy [Unknown]
  - Thyroid mass [Unknown]
